FAERS Safety Report 10378216 (Version 1)
Quarter: 2014Q1

REPORT INFORMATION
  Report Type: Spontaneous
  Country: US (occurrence: None)
  Receive Date: 20140306
  Receipt Date: 20140306
  Transmission Date: 20141002
  Serious: Yes (Other)
  Sender: FDA-Public Use
  Company Number: 163-21880-13013019

PATIENT
  Age: 80 Year
  Sex: Female

DRUGS (3)
  1. COUMADIN (WARFARIN SODIUM) [Concomitant]
  2. DIOVAN (CO-DIOVAN) [Concomitant]
  3. REVLIMID [Suspect]
     Indication: 5Q MINUS SYNDROME
     Route: 048
     Dates: start: 20121123

REACTIONS (6)
  - Thrombosis [None]
  - Blood sodium decreased [None]
  - Urinary tract infection [None]
  - Fatigue [None]
  - Local swelling [None]
  - Myalgia [None]
